FAERS Safety Report 13102813 (Version 1)
Quarter: 2017Q1

REPORT INFORMATION
  Report Type: Spontaneous
  Country: SE (occurrence: SE)
  Receive Date: 20170110
  Receipt Date: 20170110
  Transmission Date: 20170428
  Serious: Yes (Hospitalization)
  Sender: FDA-Public Use
  Company Number: SE-TEVA-726624ISR

PATIENT
  Age: 74 Year
  Sex: Female

DRUGS (3)
  1. ELIQUIS [Concomitant]
     Active Substance: APIXABAN
  2. RAMIPRIL. [Suspect]
     Active Substance: RAMIPRIL
  3. SPARKAL [Concomitant]
     Active Substance: AMILORIDE HYDROCHLORIDE

REACTIONS (2)
  - Hyponatraemia [Unknown]
  - Gastrointestinal haemorrhage [Unknown]
